FAERS Safety Report 16991000 (Version 3)
Quarter: 2020Q2

REPORT INFORMATION
  Report Type: Spontaneous
  Country: US (occurrence: US)
  Receive Date: 20191104
  Receipt Date: 20200612
  Transmission Date: 20200713
  Serious: No
  Sender: FDA-Public Use
  Company Number: US-SA-2019SA304965

PATIENT

DRUGS (24)
  1. PROCARDIA [Concomitant]
     Active Substance: NIFEDIPINE
  2. METHOTREXATE. [Concomitant]
     Active Substance: METHOTREXATE
  3. NIFEDIPINE. [Concomitant]
     Active Substance: NIFEDIPINE
  4. NITRO BID [Concomitant]
  5. ONE A DAY WOMEN^S [Concomitant]
     Active Substance: MINERALS\VITAMINS
  6. ALEVE [Concomitant]
     Active Substance: NAPROXEN SODIUM
  7. OPSUMIT [Concomitant]
     Active Substance: MACITENTAN
  8. OXYGEN. [Concomitant]
     Active Substance: OXYGEN
  9. HYDROCODONE/ACETAMINOPHEN [Concomitant]
     Active Substance: ACETAMINOPHEN\HYDROCODONE
  10. PREDNISONE. [Concomitant]
     Active Substance: PREDNISONE
  11. FOLIC ACID. [Concomitant]
     Active Substance: FOLIC ACID
  12. CRANBERRY [VACCINIUM MACROCARPON] [Concomitant]
     Active Substance: CRANBERRY
  13. PROAIR HFA [Concomitant]
     Active Substance: ALBUTEROL SULFATE
  14. BREO ELLIPTA [Concomitant]
     Active Substance: FLUTICASONE FUROATE\VILANTEROL TRIFENATATE
  15. SILDENAFIL CITRATE. [Concomitant]
     Active Substance: SILDENAFIL CITRATE
  16. LO LOESTRIN FE [Concomitant]
     Active Substance: ETHINYL ESTRADIOL\NORETHINDRONE ACETATE
  17. ACIDOPHILUS [Concomitant]
     Active Substance: LACTOBACILLUS ACIDOPHILUS
  18. GLUCOSAMINE AND CHONDROITIN [Concomitant]
     Active Substance: CHONDROITIN SULFATE (BOVINE)\GLUCOSAMINE HYDROCHLORIDE
  19. SPIRONOLACTONE. [Concomitant]
     Active Substance: SPIRONOLACTONE
  20. NAPROXEN. [Concomitant]
     Active Substance: NAPROXEN
  21. KEVZARA [Suspect]
     Active Substance: SARILUMAB
     Indication: RHEUMATOID ARTHRITIS
     Dosage: 200 MG, QOW
     Route: 058
  22. FUROSEMIDE. [Concomitant]
     Active Substance: FUROSEMIDE
  23. FLUTICASONE PROPIONATE. [Concomitant]
     Active Substance: FLUTICASONE PROPIONATE
  24. ASPIRIN [ACETYLSALICYLIC ACID] [Concomitant]
     Active Substance: ASPIRIN

REACTIONS (6)
  - Pain in extremity [Unknown]
  - Body temperature increased [Unknown]
  - Joint lock [Unknown]
  - Arthralgia [Unknown]
  - Dehydration [Unknown]
  - Nasopharyngitis [Unknown]

NARRATIVE: CASE EVENT DATE: 20191022
